FAERS Safety Report 15084367 (Version 2)
Quarter: 2018Q3

REPORT INFORMATION
  Report Type: Spontaneous
  Country: US (occurrence: US)
  Receive Date: 20180628
  Receipt Date: 20180907
  Transmission Date: 20181010
  Serious: No
  Sender: FDA-Public Use
  Company Number: US-ASTRAZENECA-2018SE64626

PATIENT
  Age: 25567 Day
  Sex: Female
  Weight: 83.9 kg

DRUGS (9)
  1. ATENOLOL. [Suspect]
     Active Substance: ATENOLOL
     Indication: HYPERTENSION
     Route: 048
  2. BUSPIRONE [Concomitant]
     Active Substance: BUSPIRONE HYDROCHLORIDE
     Indication: SLEEP DISORDER
  3. PIOGLITAZONE. [Concomitant]
     Active Substance: PIOGLITAZONE
  4. ACARBOSE. [Concomitant]
     Active Substance: ACARBOSE
     Dosage: 15.0MG UNKNOWN
  5. BYDUREON [Suspect]
     Active Substance: EXENATIDE
     Indication: TYPE 2 DIABETES MELLITUS
     Route: 058
     Dates: start: 201804
  6. BYDUREON BCISE [Suspect]
     Active Substance: EXENATIDE
     Indication: TYPE 2 DIABETES MELLITUS
     Route: 058
     Dates: start: 20180423
  7. LORATADINE. [Concomitant]
     Active Substance: LORATADINE
     Indication: SINUS DISORDER
     Dosage: 10.0MG AS REQUIRED
  8. AMLODIPINE? BENAZAPRIL [Concomitant]
     Indication: HYPERTENSION
     Dosage: 5/20 MG UNKNOWN
     Route: 048
  9. HYDROCHLOROTHIAZIDE. [Concomitant]
     Active Substance: HYDROCHLOROTHIAZIDE
     Indication: DIURETIC THERAPY

REACTIONS (10)
  - Drug ineffective [Unknown]
  - Diabetes mellitus inadequate control [Unknown]
  - Injection site pain [Unknown]
  - Nausea [Unknown]
  - Injection site extravasation [Recovered/Resolved]
  - Device malfunction [Unknown]
  - Injection site haemorrhage [Unknown]
  - Incorrect dose administered [Unknown]
  - Needle issue [Unknown]
  - Wrong technique in product usage process [Unknown]

NARRATIVE: CASE EVENT DATE: 20180507
